FAERS Safety Report 8228707-9 (Version None)
Quarter: 2012Q1

REPORT INFORMATION
  Report Type: 
  Country: None (occurrence: None)
  Receive Date: 20120322
  Receipt Date: 20120319
  Transmission Date: 20120608
  Serious: No
  Sender: FDA-Public Use
  Company Number: US-PFIZER INC-2012071083

PATIENT
  Sex: Female
  Weight: 104 kg

DRUGS (2)
  1. LYRICA [Suspect]
     Indication: FIBROMYALGIA
     Dosage: 75 MG IN THE MORNING AND 150MG IN NIGHT
     Route: 048
     Dates: start: 20110701
  2. LEVOTHYROXINE [Concomitant]
     Indication: HYPOTHYROIDISM
     Dosage: 75 UG, DAILY
     Dates: start: 20040101

REACTIONS (6)
  - VITAMIN E DECREASED [None]
  - HYPOAESTHESIA ORAL [None]
  - SKIN WRINKLING [None]
  - SOMNOLENCE [None]
  - VITAMIN D DECREASED [None]
  - LIP DISORDER [None]
